FAERS Safety Report 10560833 (Version 3)
Quarter: 2015Q2

REPORT INFORMATION
  Report Type: Spontaneous
  Country: FR (occurrence: FR)
  Receive Date: 20141103
  Receipt Date: 20150615
  Transmission Date: 20150821
  Serious: Yes (Hospitalization)
  Sender: FDA-Public Use
  Company Number: FR-DSJP-DSE-2014-127581

PATIENT
  Sex: Female

DRUGS (1)
  1. OLMETEC [Suspect]
     Active Substance: OLMESARTAN MEDOXOMIL
     Indication: HYPERTENSION
     Dosage: UNK
     Route: 048
     Dates: end: 2012

REACTIONS (1)
  - Malabsorption [Recovered/Resolved]

NARRATIVE: CASE EVENT DATE: 2012
